FAERS Safety Report 9236053 (Version 1)
Quarter: 2013Q2

REPORT INFORMATION
  Report Type: Spontaneous
  Country: US (occurrence: US)
  Receive Date: 20130417
  Receipt Date: 20130417
  Transmission Date: 20140414
  Serious: Yes (Other)
  Sender: FDA-Public Use
  Company Number: US-COVIDIEN/TYCO HEALTHCARE/MALLINCKRODT-T201301585

PATIENT
  Sex: Female
  Weight: 62 kg

DRUGS (6)
  1. MORPHINE EXTENDED-RELEASE [Suspect]
     Indication: PAIN
     Dosage: UNK UNK, QID
     Route: 048
     Dates: start: 20121004
  2. FENTANYL [Suspect]
     Indication: PAIN
     Dosage: 50 UG/HR, 1 PATCH Q 72 HRS
     Route: 062
     Dates: start: 20130222, end: 20130321
  3. FENTANYL [Suspect]
     Dosage: 75 UG/HR, 1 PATCH Q 72 HRS
     Route: 062
     Dates: start: 20130321
  4. FENTANYL [Suspect]
     Dosage: 100 UG/HR, 1 PATCH Q 72 HRS
     Route: 062
     Dates: start: 20130322, end: 20130322
  5. OXYCODONE / ACETAMINOPHEN [Suspect]
     Indication: ANALGESIC THERAPY
     Dosage: 1QID/PRN
     Route: 048
     Dates: start: 201211, end: 20130311
  6. SULFAMETHOXAZOLE AND TRIMETHOPRIM [Suspect]
     Indication: URINARY TRACT INFECTION
     Dosage: 1 QID/PRN
     Route: 048
     Dates: start: 20130318

REACTIONS (8)
  - Abasia [Recovered/Resolved]
  - Alopecia [Recovered/Resolved]
  - Dysuria [Not Recovered/Not Resolved]
  - Hepatic steatosis [Not Recovered/Not Resolved]
  - Urinary tract infection [Not Recovered/Not Resolved]
  - Abdominal pain [Not Recovered/Not Resolved]
  - Somnolence [Not Recovered/Not Resolved]
  - Drug ineffective [Not Recovered/Not Resolved]
